FAERS Safety Report 9338623 (Version 2)
Quarter: 2013Q3

REPORT INFORMATION
  Report Type: Spontaneous
  Country: DE (occurrence: DE)
  Receive Date: 20130610
  Receipt Date: 20130920
  Transmission Date: 20140515
  Serious: Yes (Hospitalization)
  Sender: FDA-Public Use
  Company Number: PHHY2013DE058014

PATIENT
  Age: 48 Year
  Sex: Male

DRUGS (2)
  1. LEPONEX [Suspect]
     Indication: SCHIZOPHRENIA
     Dosage: 1 DF, QD
     Route: 048
  2. SOLIAN [Suspect]
     Indication: SCHIZOPHRENIA
     Dosage: 1 DF, QD

REACTIONS (1)
  - Adenocarcinoma of salivary gland [Unknown]
